FAERS Safety Report 8909537 (Version 3)
Quarter: 2013Q1

REPORT INFORMATION
  Report Type: Spontaneous
  Country: US (occurrence: None)
  Receive Date: 20121107
  Receipt Date: 20130124
  Transmission Date: 20140127
  Serious: Yes (Other)
  Sender: FDA-Public Use
  Company Number: AUR-APL-2012-03632

PATIENT
  Age: 69 Year
  Sex: Male
  Weight: 74.83 kg

DRUGS (9)
  1. LISINOPRIL AND HYDROCHLOROTHIAZIDE [Suspect]
     Indication: HYPERTENSION
  2. SUTENT [Suspect]
     Indication: METASTATIC RENAL CELL CARCINOMA
     Dosage: (50 MG, 1 D), UNKNOWN
     Dates: start: 20120727
  3. LORTAB [Concomitant]
  4. OXYCODONE [Concomitant]
  5. MIRALAX [Concomitant]
  6. ONDANSETRON [Concomitant]
  7. ALPRAZOLAM [Concomitant]
  8. VITAMINS [Concomitant]
  9. ASPIRIN [Concomitant]

REACTIONS (21)
  - Decreased appetite [None]
  - Fatigue [None]
  - Chromaturia [None]
  - Hyperaesthesia [None]
  - Dizziness [None]
  - Product quality issue [None]
  - Erythema [None]
  - Skin exfoliation [None]
  - Dysgeusia [None]
  - Rash [None]
  - Constipation [None]
  - Dry skin [None]
  - Procedural pain [None]
  - Infected cyst [None]
  - Lung disorder [None]
  - Platelet count decreased [None]
  - Haemoglobin decreased [None]
  - Weight decreased [None]
  - Skin exfoliation [None]
  - Dysgeusia [None]
  - Musculoskeletal discomfort [None]
